FAERS Safety Report 7190752-2 (Version None)
Quarter: 2010Q4

REPORT INFORMATION
  Report Type: 
  Country: None (occurrence: None)
  Receive Date: 20101213
  Receipt Date: 20101130
  Transmission Date: 20110411
  Serious: Yes (Other)
  Sender: FDA-Public Use
  Company Number: 021577

PATIENT
  Sex: Female
  Weight: 66 kg

DRUGS (4)
  1. CIMZIA [Suspect]
     Indication: CROHN'S DISEASE
     Dosage: SUBCUTANEOUS
     Route: 058
     Dates: start: 20101022, end: 20100101
  2. LEXAPRO [Concomitant]
  3. TRILEPTAL [Concomitant]
  4. MERCAPTOPURINE [Concomitant]

REACTIONS (4)
  - BALANCE DISORDER [None]
  - LOSS OF CONSCIOUSNESS [None]
  - MUSCULAR WEAKNESS [None]
  - MUSCULOSKELETAL STIFFNESS [None]
